FAERS Safety Report 26039579 (Version 1)
Quarter: 2025Q4

REPORT INFORMATION
  Report Type: Spontaneous
  Country: GB (occurrence: GB)
  Receive Date: 20251113
  Receipt Date: 20251113
  Transmission Date: 20260117
  Serious: Yes (Other)
  Sender: IDORSIA PHARMACEUTICALS
  Company Number: GB-IDORSIA-012441-2025-GB

PATIENT
  Age: 39 Year
  Sex: Male

DRUGS (1)
  1. QUVIVIQ [Suspect]
     Active Substance: DARIDOREXANT
     Indication: Insomnia
     Dosage: 50 MG
     Route: 065

REACTIONS (2)
  - Concomitant disease aggravated [Recovered/Resolved]
  - Suicidal ideation [Recovered/Resolved]
